FAERS Safety Report 8078172-X (Version None)
Quarter: 2012Q1

REPORT INFORMATION
  Report Type: 
  Country: None (occurrence: None)
  Receive Date: 20120127
  Receipt Date: 20111103
  Transmission Date: 20120608
  Serious: No
  Sender: FDA-Public Use
  Company Number: US-BAUSCH-2011BL007711

PATIENT
  Age: 44 Year
  Sex: Male

DRUGS (3)
  1. LISINOPRIL [Concomitant]
  2. ZYLET [Suspect]
     Indication: CONJUNCTIVITIS BACTERIAL
     Route: 047
     Dates: start: 20111102, end: 20111103
  3. TESTOSTERONE [Concomitant]

REACTIONS (2)
  - EYE PAIN [None]
  - CONDITION AGGRAVATED [None]
